FAERS Safety Report 14133988 (Version 2)
Quarter: 2017Q4

REPORT INFORMATION
  Report Type: Spontaneous
  Country: US (occurrence: US)
  Receive Date: 20171026
  Receipt Date: 20171127
  Transmission Date: 20180321
  Serious: Yes (Other)
  Sender: FDA-Public Use
  Company Number: US-BAYER-2017-199586

PATIENT
  Age: 55 Year
  Sex: Female

DRUGS (1)
  1. CLIMARA PRO [Suspect]
     Active Substance: ESTRADIOL\LEVONORGESTREL
     Indication: HORMONE REPLACEMENT THERAPY
     Dosage: UNK
     Route: 062
     Dates: start: 201612

REACTIONS (6)
  - Postmenopausal haemorrhage [None]
  - Wrong technique in product usage process [None]
  - Underdose [None]
  - Off label use [None]
  - Product physical issue [None]
  - Device breakage [None]

NARRATIVE: CASE EVENT DATE: 201612
